FAERS Safety Report 18127304 (Version 1)
Quarter: 2020Q3

REPORT INFORMATION
  Report Type: Spontaneous
  Country: US (occurrence: US)
  Receive Date: 20200810
  Receipt Date: 20200810
  Transmission Date: 20201103
  Serious: Yes (Other)
  Sender: FDA-Public Use
  Company Number: US-HIKMA PHARMACEUTICALS USA INC.-US-H14001-20-03749

PATIENT

DRUGS (1)
  1. TESTOSTERONE CYPIONATE. [Suspect]
     Active Substance: TESTOSTERONE CYPIONATE
     Indication: HYPOGONADISM
     Route: 051
     Dates: start: 20200515

REACTIONS (5)
  - Cellulitis [Unknown]
  - Suspected transmission of an infectious agent via product [Unknown]
  - Pain of skin [Unknown]
  - Infection [Unknown]
  - Haematoma [Unknown]

NARRATIVE: CASE EVENT DATE: 20200623
